FAERS Safety Report 21689188 (Version 1)
Quarter: 2022Q4

REPORT INFORMATION
  Report Type: Spontaneous
  Country: US (occurrence: None)
  Receive Date: 20221205
  Receipt Date: 20221205
  Transmission Date: 20230113
  Serious: Yes (Death)
  Sender: FDA-Public Use
  Company Number: None

PATIENT
  Age: 47 Year
  Sex: Female

DRUGS (7)
  1. AMBRISENTAN [Suspect]
     Active Substance: AMBRISENTAN
     Indication: Pulmonary hypertension
     Dosage: FREQUENCY : DAILY;?
     Route: 048
     Dates: start: 20121022, end: 20221110
  2. SILDENAFIL [Concomitant]
     Active Substance: SILDENAFIL
  3. EPOPROSTENOL [Concomitant]
     Active Substance: EPOPROSTENOL
  4. DULOXETINE [Concomitant]
     Active Substance: DULOXETINE
  5. ONDANSETRON [Concomitant]
     Active Substance: ONDANSETRON
  6. SPIRONOLACTONE [Concomitant]
     Active Substance: SPIRONOLACTONE
  7. FUROSEMIDE [Concomitant]
     Active Substance: FUROSEMIDE

REACTIONS (1)
  - Death [None]

NARRATIVE: CASE EVENT DATE: 20221110
